FAERS Safety Report 19947309 (Version 1)
Quarter: 2021Q4

REPORT INFORMATION
  Report Type: Spontaneous
  Country: BR (occurrence: BR)
  Receive Date: 20211012
  Receipt Date: 20211012
  Transmission Date: 20220303
  Serious: Yes (Hospitalization)
  Sender: FDA-Public Use
  Company Number: BR-NAPPMUNDI-GBR-2021-0091402

PATIENT
  Age: 56 Year
  Sex: Female

DRUGS (12)
  1. BUPRENORPHINE [Suspect]
     Active Substance: BUPRENORPHINE
     Indication: Fibromyalgia
     Dosage: 1 PATCH, WEEKLY(STRENGTH 5MG)
     Route: 062
  2. DULOXETINE HYDROCHLORIDE [Concomitant]
     Active Substance: DULOXETINE HYDROCHLORIDE
     Dosage: 1 TABLET, DAILY
     Route: 048
  3. ZOLPIDEM [Concomitant]
     Active Substance: ZOLPIDEM TARTRATE
     Dosage: 1 TABLET, DAILY
     Route: 048
  4. GABAPENTIN [Concomitant]
     Active Substance: GABAPENTIN
     Dosage: 1 TABLET, DAILY
     Route: 048
  5. VITAMINS WITH MINERALS [Concomitant]
     Active Substance: MINERALS\VITAMINS
     Dosage: 1 TABLET, DAILY
     Route: 048
  6. CALCIPLEX [Concomitant]
     Dosage: 1 TABLET, DAILY
     Route: 048
  7. ATENOLOL [Concomitant]
     Active Substance: ATENOLOL
     Dosage: 1 TABLET, DAILY
     Route: 048
  8. NEURAL                             /01047101/ [Concomitant]
     Dosage: 1 TABLET, DAILY
     Route: 048
  9. IBANDRONATE SODIUM [Concomitant]
     Active Substance: IBANDRONATE SODIUM
     Dosage: 150 MG, MONTHLY
     Route: 048
  10. VITAMIN D3 [Concomitant]
     Active Substance: CHOLECALCIFEROL
     Dosage: 7000 IU, 1/WEEK
     Route: 048
  11. PREGABALIN [Concomitant]
     Active Substance: PREGABALIN
     Dosage: 2 TABLET, DAILY
     Route: 048
  12. VENLAFAXINE [Concomitant]
     Active Substance: VENLAFAXINE HYDROCHLORIDE
     Dosage: 1 TABLET, DAILY
     Route: 048

REACTIONS (2)
  - Bone cyst [Unknown]
  - Product adhesion issue [Unknown]
